FAERS Safety Report 6150338-5 (Version None)
Quarter: 2009Q2

REPORT INFORMATION
  Report Type: 
  Country: None (occurrence: None)
  Receive Date: 20090407
  Receipt Date: 20090324
  Transmission Date: 20091009
  Serious: Yes (Death)
  Sender: FDA-Public Use
  Company Number: B0567762A

PATIENT
  Sex: 0

DRUGS (5)
  1. AMOXICILLIN TRIHYDRATE [Suspect]
  2. CEFUROXIME SODIUM [Suspect]
  3. CIPROFLOXACIN HCL [Suspect]
  4. LACTULOSE [Suspect]
  5. SENNOSIDES (FORMULATION UNKNOWN) (SENNOSIDES) [Suspect]

REACTIONS (1)
  - CLOSTRIDIAL INFECTION [None]
